FAERS Safety Report 5491044-X (Version None)
Quarter: 2007Q4

REPORT INFORMATION
  Report Type: 
  Country: None (occurrence: None)
  Receive Date: 20071019
  Receipt Date: 20071009
  Transmission Date: 20080405
  Serious: Yes (Life-Threatening)
  Sender: FDA-Public Use
  Company Number: FR-SANOFI-SYNTHELABO-A02200703006

PATIENT
  Sex: Male

DRUGS (21)
  1. CIFLOX [Concomitant]
     Route: 048
     Dates: end: 20070725
  2. CIFLOX [Concomitant]
     Route: 048
     Dates: start: 20070726, end: 20070803
  3. SEROPRAM [Concomitant]
     Route: 048
     Dates: start: 20070613
  4. LASIX [Concomitant]
     Route: 048
     Dates: start: 20070713, end: 20070718
  5. LASIX [Concomitant]
     Route: 048
     Dates: start: 20070726
  6. KARDEGIC [Concomitant]
     Route: 048
     Dates: start: 20070727
  7. VALIUM [Suspect]
     Indication: DRUG USE FOR UNKNOWN INDICATION
     Route: 040
     Dates: start: 20070801, end: 20070806
  8. CALCIPARINE [Concomitant]
     Route: 058
     Dates: start: 20070726, end: 20070731
  9. CALCIPARINE [Concomitant]
     Route: 058
     Dates: start: 20070801
  10. IRBESARTAN [Concomitant]
     Route: 048
     Dates: start: 20070718
  11. LIORESAL [Suspect]
     Indication: DRUG USE FOR UNKNOWN INDICATION
     Dosage: 15 MG
     Route: 048
     Dates: start: 20070803
  12. INIPOMP [Concomitant]
     Route: 048
     Dates: start: 20070713
  13. PARACETAMOL [Concomitant]
     Route: 065
     Dates: start: 20070801
  14. TEMESTA [Concomitant]
     Route: 048
     Dates: start: 20070718
  15. FORTUM [Concomitant]
     Route: 048
     Dates: end: 20070725
  16. FORTUM [Concomitant]
     Route: 048
     Dates: start: 20070726, end: 20070803
  17. ZOLPIDEM TARTRATE [Suspect]
     Indication: DRUG USE FOR UNKNOWN INDICATION
     Route: 048
     Dates: start: 20070726, end: 20070806
  18. XATRAL [Suspect]
     Indication: DRUG USE FOR UNKNOWN INDICATION
     Route: 048
     Dates: start: 20070724, end: 20070806
  19. LOXAPAC [Suspect]
     Indication: DRUG USE FOR UNKNOWN INDICATION
     Route: 048
     Dates: start: 20070713, end: 20070718
  20. LOXAPAC [Suspect]
     Route: 048
     Dates: start: 20070730, end: 20070730
  21. LOXAPAC [Suspect]
     Route: 048
     Dates: start: 20070731, end: 20070806

REACTIONS (1)
  - COMA [None]
